FAERS Safety Report 8933374 (Version 2)
Quarter: 2012Q4

REPORT INFORMATION
  Report Type: 
  Country: JP (occurrence: JP)
  Receive Date: 20121128
  Receipt Date: 20121207
  Transmission Date: 20130627
  Serious: Yes (Death)
  Sender: FDA-Public Use
  Company Number: JP-BAXTER-2012BAX025479

PATIENT
  Age: 61 Year
  Sex: Female

DRUGS (2)
  1. DIANEAL-N PD-4 1.5 [Suspect]
     Indication: GLOMERULONEPHRITIS CHRONIC
     Dosage: 5000 ml
     Route: 033
  2. EXTRANEAL [Suspect]
     Indication: GLOMERULONEPHRITIS CHRONIC
     Route: 033

REACTIONS (1)
  - Acute myocardial infarction [Fatal]
